FAERS Safety Report 17852961 (Version 1)
Quarter: 2020Q2

REPORT INFORMATION
  Report Type: Spontaneous
  Country: US (occurrence: US)
  Receive Date: 20200602
  Receipt Date: 20200602
  Transmission Date: 20200714
  Serious: No
  Sender: FDA-Public Use
  Company Number: US-FOUNDATIONCONSUMERHC-2019-US-024704

PATIENT
  Age: 23 Year
  Sex: Female
  Weight: 65.77 kg

DRUGS (5)
  1. CALCIUM [Concomitant]
     Active Substance: CALCIUM
  2. PLAN B ONE-STEP [Suspect]
     Active Substance: LEVONORGESTREL
     Indication: POST COITAL CONTRACEPTION
     Dosage: 1.5 MG X 1 DOSE
     Route: 048
     Dates: start: 2016, end: 2016
  3. VITAMIN B [Concomitant]
     Active Substance: VITAMIN B
  4. VITAMIN C [Concomitant]
     Active Substance: ASCORBIC ACID
  5. VITAMIN A [Concomitant]
     Active Substance: VITAMIN A

REACTIONS (1)
  - Vaginal haemorrhage [Recovered/Resolved]

NARRATIVE: CASE EVENT DATE: 2016
